FAERS Safety Report 6558246-2 (Version None)
Quarter: 2010Q1

REPORT INFORMATION
  Report Type: 
  Country: None (occurrence: None)
  Receive Date: 20100126
  Receipt Date: 20100113
  Transmission Date: 20100710
  Serious: Yes (Hospitalization)
  Sender: FDA-Public Use
  Company Number: 8048381

PATIENT
  Sex: Female
  Weight: 3.1 kg

DRUGS (9)
  1. KEPPRA [Suspect]
     Indication: EPILEPSY
     Dosage: 1500 MG, DOSE FREQ: DAILY TRANSPLACENTAL
     Route: 064
  2. LACOSAMINE [Suspect]
     Indication: EPILEPSY
     Dosage: 1000 MG, DOSE FREQ: DAILY TRANSPLACENTAL
     Route: 064
     Dates: start: 20090615
  3. PRENATAL VITAMINS /01549301/ [Concomitant]
  4. CLARITIN /00917501/ [Concomitant]
  5. ALBUTEROL SULFATE [Concomitant]
  6. MUCINEX [Concomitant]
  7. LANTUS [Concomitant]
  8. IRON [Concomitant]
  9. ADVAIR DISKUS 100/50 [Concomitant]

REACTIONS (3)
  - DRUG EXPOSURE VIA BREAST MILK [None]
  - MATERNAL DRUGS AFFECTING FOETUS [None]
  - PULMONARY OEDEMA NEONATAL [None]
